FAERS Safety Report 22384264 (Version 2)
Quarter: 2023Q2

REPORT INFORMATION
  Report Type: Spontaneous
  Country: US (occurrence: US)
  Receive Date: 20230530
  Receipt Date: 20230622
  Transmission Date: 20230722
  Serious: No
  Sender: FDA-Public Use
  Company Number: US-SA-SAC20230529001157

PATIENT
  Age: 41 Year
  Sex: Female

DRUGS (4)
  1. DUPIXENT [Suspect]
     Active Substance: DUPILUMAB
     Dosage: 300 MG, FREQUENCY: OTHER
     Route: 058
  2. FUROSEMIDE [Concomitant]
     Active Substance: FUROSEMIDE
  3. ROPINIROLE [Concomitant]
     Active Substance: ROPINIROLE
  4. TIZANIDINE [Concomitant]
     Active Substance: TIZANIDINE

REACTIONS (1)
  - Herpes simplex [Unknown]

NARRATIVE: CASE EVENT DATE: 20230201
